FAERS Safety Report 7814259-1 (Version None)
Quarter: 2011Q4

REPORT INFORMATION
  Report Type: 
  Country: None (occurrence: None)
  Receive Date: 20111011
  Receipt Date: 20110927
  Transmission Date: 20120403
  Serious: Yes (Hospitalization, Other)
  Sender: FDA-Public Use
  Company Number: NSR_00279_2011

PATIENT
  Age: 15 Year
  Sex: Male

DRUGS (3)
  1. TRAMADOL HCL [Suspect]
     Indication: PAIN
     Dosage: (25 MG, ONCE ORAL) ; (500 MG, ONCE)
     Route: 048
  2. TRAMADOL HCL [Suspect]
     Indication: PAIN
     Dosage: (25 MG, ONCE ORAL) ; (500 MG, ONCE)
     Route: 048
  3. NAPROXEN [Suspect]
     Indication: OSTEOMA
     Dosage: (DF)

REACTIONS (5)
  - GRAND MAL CONVULSION [None]
  - OVERDOSE [None]
  - HALLUCINATION, AUDITORY [None]
  - CONFUSIONAL STATE [None]
  - PSYCHOTIC DISORDER [None]
